FAERS Safety Report 7093961-6 (Version None)
Quarter: 2010Q4

REPORT INFORMATION
  Report Type: 
  Country: None (occurrence: None)
  Receive Date: 20101110
  Receipt Date: 20101027
  Transmission Date: 20110411
  Serious: Yes (Death)
  Sender: FDA-Public Use
  Company Number: BE-GENZYME-CAMP-1001087

PATIENT
  Age: 71 Year

DRUGS (1)
  1. CAMPATH [Suspect]
     Indication: PERIPHERAL T-CELL LYMPHOMA UNSPECIFIED
     Dosage: UNK
     Route: 065
     Dates: start: 20100801, end: 20100801

REACTIONS (1)
  - DEATH [None]
